FAERS Safety Report 23441676 (Version 1)
Quarter: 2024Q1

REPORT INFORMATION
  Report Type: Report from Study
  Country: MX (occurrence: None)
  Receive Date: 20240125
  Receipt Date: 20240125
  Transmission Date: 20240410
  Serious: Yes (Death, Other)
  Sender: FDA-Public Use
  Company Number: 2023A024932

PATIENT
  Age: 34405 Day
  Sex: Female
  Weight: 88 kg

DRUGS (2)
  1. TAGRISSO [Suspect]
     Active Substance: OSIMERTINIB
     Indication: Lung neoplasm malignant
     Route: 048
     Dates: start: 20220106
  2. TAGRISSO [Suspect]
     Active Substance: OSIMERTINIB
     Indication: Lung neoplasm malignant
     Route: 048
     Dates: start: 20220607

REACTIONS (13)
  - Intervertebral disc degeneration [Unknown]
  - Renal cyst [Unknown]
  - Chronic obstructive pulmonary disease [Unknown]
  - Pleural effusion [Unknown]
  - Pulmonary mass [Unknown]
  - Cardiomegaly [Unknown]
  - Bronchiectasis [Unknown]
  - Thoracic vertebral fracture [Unknown]
  - Aortic arteriosclerosis [Unknown]
  - Pleural thickening [Unknown]
  - Spinal osteoarthritis [Unknown]
  - Pulmonary fibrosis [Unknown]
  - Death [Fatal]

NARRATIVE: CASE EVENT DATE: 20230127
